FAERS Safety Report 19439561 (Version 2)
Quarter: 2021Q2

REPORT INFORMATION
  Report Type: Spontaneous
  Country: US (occurrence: US)
  Receive Date: 20210619
  Receipt Date: 20210629
  Transmission Date: 20210717
  Serious: Yes (Other)
  Sender: FDA-Public Use
  Company Number: US-AUROBINDO-AUR-APL-2021-025396

PATIENT
  Age: 69 Year
  Sex: Male

DRUGS (9)
  1. GABAPENTIN. [Concomitant]
     Active Substance: GABAPENTIN
     Dosage: 1600 MILLIGRAM, ONCE A DAY, BEDTIME
     Route: 065
  2. LAMOTRIGINE. [Concomitant]
     Active Substance: LAMOTRIGINE
     Indication: BIPOLAR DISORDER
     Dosage: 200 MICROGRAM, ONCE A DAY
     Route: 065
     Dates: end: 201802
  3. GABAPENTIN. [Concomitant]
     Active Substance: GABAPENTIN
     Dosage: 800 MILLIGRAM, ONCE A DAY, MORNING
     Route: 065
     Dates: end: 201808
  4. LAMOTRIGINE. [Concomitant]
     Active Substance: LAMOTRIGINE
     Dosage: 100 MICROGRAM, ONCE A DAY, AM
     Route: 065
     Dates: start: 201803
  5. LAMOTRIGINE. [Concomitant]
     Active Substance: LAMOTRIGINE
     Dosage: UNK
     Route: 065
  6. GABAPENTIN. [Concomitant]
     Active Substance: GABAPENTIN
     Indication: BIPOLAR DISORDER
     Dosage: 3200 MILLIGRAM, ONCE A DAY, BEDTIME
     Route: 065
     Dates: end: 201611
  7. FLUOXETINE [Suspect]
     Active Substance: FLUOXETINE HYDROCHLORIDE
     Indication: BIPOLAR DISORDER
     Dosage: 40 MILLIGRAM, ONCE A DAY
     Route: 065
     Dates: end: 201612
  8. LAMOTRIGINE. [Concomitant]
     Active Substance: LAMOTRIGINE
     Dosage: 200 MICROGRAM, ONCE A DAY, PM
     Route: 065
     Dates: start: 201803
  9. PRAMIPEXOLE. [Concomitant]
     Active Substance: PRAMIPEXOLE
     Indication: BIPOLAR DISORDER
     Dosage: 375 MICROGRAM, ONCE A DAY
     Route: 065
     Dates: end: 201707

REACTIONS (4)
  - Bipolar I disorder [Recovering/Resolving]
  - Irritability [Recovering/Resolving]
  - Mood altered [Recovering/Resolving]
  - Condition aggravated [Recovering/Resolving]

NARRATIVE: CASE EVENT DATE: 2016
